FAERS Safety Report 4300392-8 (Version None)
Quarter: 2004Q1

REPORT INFORMATION
  Report Type: 
  Country: None (occurrence: None)
  Receive Date: 20040220
  Receipt Date: 20040211
  Transmission Date: 20041129
  Serious: Yes (Hospitalization)
  Sender: FDA-Public Use
  Company Number: PT-GLAXOSMITHKLINE-B0323137A

PATIENT
  Age: 21 Year
  Sex: Male

DRUGS (2)
  1. LAMOTRIGINE [Suspect]
     Route: 048
  2. CARBAMAZEPINE [Concomitant]

REACTIONS (1)
  - CARDIAC FAILURE [None]
